FAERS Safety Report 4775399-7 (Version None)
Quarter: 2005Q3

REPORT INFORMATION
  Report Type: 
  Country: None (occurrence: None)
  Receive Date: 20050922
  Receipt Date: 20050914
  Transmission Date: 20060218
  Serious: Yes (Other)
  Sender: FDA-Public Use
  Company Number: FR-SP-2005-01849

PATIENT

DRUGS (2)
  1. IMMUCYST [Suspect]
     Indication: URETERIC CANCER
     Route: 043
  2. IMMUCYST [Suspect]
     Route: 043

REACTIONS (2)
  - DISSEMINATED TUBERCULOSIS [None]
  - PYREXIA [None]
